FAERS Safety Report 9007572 (Version 1)
Quarter: 2013Q1

REPORT INFORMATION
  Report Type: Spontaneous
  Country: US (occurrence: US)
  Receive Date: 20130111
  Receipt Date: 20130111
  Transmission Date: 20140127
  Serious: Yes (Life-Threatening, Hospitalization, Disabling, Other)
  Sender: FDA-Public Use
  Company Number: US-009507513-0907USA03602

PATIENT
  Age: 14 Year
  Sex: Female
  Weight: 45.36 kg

DRUGS (2)
  1. SINGULAIR [Suspect]
     Indication: ASTHMA
     Dosage: 5 MG, QD
     Route: 048
     Dates: start: 20060302, end: 200704
  2. SINGULAIR [Suspect]
     Indication: ASTHMA
     Dosage: 10 MG, QD
     Route: 048
     Dates: start: 200704, end: 200802

REACTIONS (41)
  - Suicidal ideation [Not Recovered/Not Resolved]
  - Abdominal pain upper [Unknown]
  - Anxiety [Unknown]
  - Blister [Unknown]
  - Homicidal ideation [Unknown]
  - Irritability [Unknown]
  - Lip swelling [Unknown]
  - Malaise [Unknown]
  - Panic attack [Unknown]
  - Paranoia [Unknown]
  - Rash [Unknown]
  - Skin exfoliation [Unknown]
  - Swelling face [Recovering/Resolving]
  - Swollen tongue [Recovering/Resolving]
  - Urticaria [Unknown]
  - Abdominal distension [Unknown]
  - Chills [Unknown]
  - Dysphagia [Unknown]
  - Dry mouth [Unknown]
  - Heart rate irregular [Unknown]
  - Fatigue [Unknown]
  - Pruritus [Unknown]
  - Muscle contracture [Unknown]
  - Nausea [Unknown]
  - Nervousness [Unknown]
  - Erythema [Unknown]
  - Restlessness [Unknown]
  - Tremor [Unknown]
  - Dyspnoea [Unknown]
  - Chest discomfort [Unknown]
  - Poor quality sleep [Unknown]
  - Wheezing [Unknown]
  - Yellow skin [Unknown]
  - Ovarian cyst [Unknown]
  - Food allergy [Unknown]
  - Constipation [Unknown]
  - Suicide attempt [Unknown]
  - Hallucination, visual [Unknown]
  - Hallucination, auditory [Unknown]
  - Hallucination [Unknown]
  - Oedema peripheral [Unknown]
